FAERS Safety Report 9186673 (Version 3)
Quarter: 2013Q2

REPORT INFORMATION
  Report Type: Report from Study
  Country: AR (occurrence: AR)
  Receive Date: 20130325
  Receipt Date: 20130508
  Transmission Date: 20140414
  Serious: Yes (Death, Hospitalization, Other)
  Sender: FDA-Public Use
  Company Number: AR-SHIRE-ALL1-2013-01799

PATIENT
  Age: 16 Year
  Sex: Male
  Weight: 35.5 kg

DRUGS (15)
  1. IDURSULFASE [Suspect]
     Indication: MUCOPOLYSACCHARIDOSIS II
     Dosage: 18 MG, 1X/WEEK
     Route: 041
     Dates: start: 20070726
  2. DIPHENHYDRAMINE [Concomitant]
     Indication: PREMEDICATION
     Dosage: 5 MG/KG, 1X/WEEK
     Route: 048
     Dates: start: 20070726
  3. DIPHENHYDRAMINE [Concomitant]
     Dosage: 11 MG, 3X/DAY:TID
     Route: 048
     Dates: start: 20070802
  4. AMOXICILLIN [Concomitant]
     Indication: PNEUMONIA
     Dosage: 100 MG, 3X/DAY:TID
     Route: 048
     Dates: start: 20110929
  5. AMOXICILLIN [Concomitant]
     Indication: HEART VALVE REPLACEMENT
     Dosage: 500 MG, 3X/DAY:TID
     Route: 048
     Dates: start: 20090305
  6. AMOXICILLIN [Concomitant]
     Indication: INFUSION
     Dosage: 500 MG, 3X/DAY:TID
     Route: 048
     Dates: start: 20070727
  7. VALPROIC ACID [Concomitant]
     Indication: NERVOUS SYSTEM DISORDER
     Dosage: 35 MG, 2X/DAY:BID
     Route: 048
     Dates: start: 20110322
  8. KARIDIUM                           /00479001/ [Concomitant]
     Indication: NERVOUS SYSTEM DISORDER
     Dosage: 10 MG, 2X/DAY:BID
     Route: 065
     Dates: start: 20081105
  9. DIAZEPAN [Concomitant]
     Indication: PRODUCT USED FOR UNKNOWN INDICATION
     Dosage: 5 MG, UNKNOWN
     Route: 042
     Dates: start: 20081105
  10. CLARITHROMYCIN [Concomitant]
     Indication: COUGH
     Dosage: 270 MG, 2X/DAY:BID
     Route: 048
     Dates: start: 20071019
  11. DEXAMETHASONE [Concomitant]
     Indication: PREMEDICATION
     Dosage: 6.6 MG, 3X/DAY:TID
     Route: 048
     Dates: start: 20070802
  12. ADRENALINE                         /00003901/ [Concomitant]
     Indication: PREMEDICATION
     Dosage: 3 ML, UNKNOWN
     Route: 042
     Dates: start: 20070802
  13. PARACETAMOL [Concomitant]
     Indication: PREMEDICATION
     Dosage: 5 ML, OTHER (1 HOUR PRE MEDICATION)
     Route: 042
     Dates: start: 20070726
  14. BENADRYL                           /00000402/ [Concomitant]
     Indication: PREMEDICATION
     Dosage: 5 ML, OTHER (1 HOUR PRE MEDICATION)
     Route: 042
     Dates: start: 20070726
  15. CEFUROXIMA                         /00454602/ [Concomitant]
     Indication: PNEUMONIA
     Dosage: 150 MG, 2X/DAY:BID
     Route: 042
     Dates: start: 20110413

REACTIONS (5)
  - Respiratory failure [Fatal]
  - Pneumonia [Recovered/Resolved]
  - Convulsion [Recovered/Resolved]
  - Vomiting [Recovered/Resolved]
  - Pyrexia [Recovered/Resolved]
